FAERS Safety Report 10449221 (Version 1)
Quarter: 2014Q3

REPORT INFORMATION
  Report Type: Spontaneous
  Country: FR (occurrence: FR)
  Receive Date: 20140912
  Receipt Date: 20140912
  Transmission Date: 20150326
  Serious: Yes (Death, Hospitalization)
  Sender: FDA-Public Use
  Company Number: FR-CELGENEUS-056-50794-14090174

PATIENT
  Age: 65 Year
  Sex: Female

DRUGS (11)
  1. TAZOCILLIN [Suspect]
     Active Substance: PIPERACILLIN SODIUM\TAZOBACTAM SODIUM
     Indication: COLITIS
     Route: 041
     Dates: start: 20140228, end: 20140310
  2. ZYVOXID [Suspect]
     Active Substance: LINEZOLID
     Indication: COLITIS
     Route: 041
     Dates: start: 20140303, end: 20140312
  3. VIDAZA [Suspect]
     Active Substance: AZACITIDINE
     Route: 058
     Dates: start: 20140227
  4. FLAGYL [Suspect]
     Active Substance: METRONIDAZOLE\METRONIDAZOLE HYDROCHLORIDE
     Route: 048
     Dates: start: 20140414, end: 20140428
  5. FLAGYL [Suspect]
     Active Substance: METRONIDAZOLE\METRONIDAZOLE HYDROCHLORIDE
     Route: 048
     Dates: start: 20140303, end: 20140312
  6. VIDAZA [Suspect]
     Active Substance: AZACITIDINE
     Route: 058
     Dates: start: 20131114
  7. VIDAZA [Suspect]
     Active Substance: AZACITIDINE
     Indication: MYELODYSPLASTIC SYNDROME
     Dosage: 100 MILLIGRAM
     Route: 058
     Dates: start: 20130930
  8. TAZOCILLIN [Suspect]
     Active Substance: PIPERACILLIN SODIUM\TAZOBACTAM SODIUM
     Indication: ESCHERICHIA INFECTION
  9. ROCEPHINE [Suspect]
     Active Substance: CEFTRIAXONE SODIUM
     Indication: COLITIS
     Route: 051
     Dates: start: 20140225, end: 20140228
  10. ROCEPHINE [Suspect]
     Active Substance: CEFTRIAXONE SODIUM
     Route: 051
     Dates: start: 20140414, end: 20140428
  11. FLAGYL [Suspect]
     Active Substance: METRONIDAZOLE\METRONIDAZOLE HYDROCHLORIDE
     Indication: COLITIS
     Route: 048
     Dates: start: 20140225, end: 20140228

REACTIONS (3)
  - Encephalopathy [Fatal]
  - Pancytopenia [Fatal]
  - Colitis [Fatal]

NARRATIVE: CASE EVENT DATE: 2013
